FAERS Safety Report 4831183-7 (Version None)
Quarter: 2005Q4

REPORT INFORMATION
  Report Type: 
  Country: None (occurrence: None)
  Receive Date: 20051116
  Receipt Date: 20051116
  Transmission Date: 20060501
  Serious: Yes (Other)
  Sender: FDA-Public Use
  Company Number: None

PATIENT
  Age: 33 Year
  Sex: Male

DRUGS (4)
  1. AMPICILLIN AND SULBACTAM [Suspect]
     Indication: CELLULITIS
     Dosage: 3 GM   ONCE  IV DRIP
     Route: 041
     Dates: start: 20050719, end: 20050719
  2. ALBUTEROL [Concomitant]
  3. PERCOCET [Concomitant]
  4. CEPHALEXIN [Concomitant]

REACTIONS (9)
  - ARTERIOSPASM CORONARY [None]
  - BLOOD PRESSURE DECREASED [None]
  - CHEST PAIN [None]
  - ELECTROCARDIOGRAM ST SEGMENT ELEVATION [None]
  - HYPERHIDROSIS [None]
  - MYOCARDIAL INFARCTION [None]
  - NAUSEA [None]
  - TROPONIN INCREASED [None]
  - VOMITING [None]
